FAERS Safety Report 4976476-8 (Version None)
Quarter: 2006Q2

REPORT INFORMATION
  Report Type: 
  Country: None (occurrence: None)
  Receive Date: 20060412
  Receipt Date: 20060401
  Transmission Date: 20061013
  Serious: Yes (Other)
  Sender: FDA-Public Use
  Company Number: 2006044822

PATIENT
  Sex: Female

DRUGS (1)
  1. UNISOM [Suspect]
     Dosage: 32 TABLETS AT ONCE, ORAL
     Route: 048

REACTIONS (1)
  - SOMNOLENCE [None]
